FAERS Safety Report 6581902-7 (Version None)
Quarter: 2010Q1

REPORT INFORMATION
  Report Type: 
  Country: None (occurrence: None)
  Receive Date: 20100212
  Receipt Date: 20100212
  Transmission Date: 20100710
  Serious: No
  Sender: FDA-Public Use
  Company Number: None

PATIENT
  Age: 87 Year
  Sex: Male

DRUGS (1)
  1. CEFTRIAXONE (ROCEPHIN) [Suspect]
     Dates: start: 20090721

REACTIONS (1)
  - NEUTROPENIA [None]
